FAERS Safety Report 10015364 (Version 2)
Quarter: 2014Q2

REPORT INFORMATION
  Report Type: Spontaneous
  Country: US (occurrence: US)
  Receive Date: 20140317
  Receipt Date: 20140417
  Transmission Date: 20141212
  Serious: Yes (Other)
  Sender: FDA-Public Use
  Company Number: US-PFIZER INC-2014076608

PATIENT
  Age: 84 Year
  Sex: Female
  Weight: 72.56 kg

DRUGS (2)
  1. EFFEXOR XR [Suspect]
     Indication: DEPRESSION
     Dosage: UNK (ELABORATED AS CHANGING BETWEEN 75 MG AND 150 MG)
  2. BABY ASPIRIN [Concomitant]
     Dosage: 81 MG, DAILY

REACTIONS (2)
  - Hip fracture [Unknown]
  - Pain [Unknown]
